FAERS Safety Report 6521916-6 (Version None)
Quarter: 2009Q4

REPORT INFORMATION
  Report Type: 
  Country: None (occurrence: None)
  Receive Date: 20091229
  Receipt Date: 20091229
  Transmission Date: 20100525
  Serious: Yes (Life-Threatening)
  Sender: FDA-Public Use
  Company Number: None

PATIENT
  Age: 46 Year
  Sex: Male
  Weight: 82 kg

DRUGS (10)
  1. PHENYTOIN [Suspect]
     Indication: CONVULSION
     Dosage: 1500 MG IV OVER 60MIN
     Route: 042
     Dates: start: 20090928
  2. CISATRACURIUM BESYLATE [Concomitant]
  3. FLOLAN [Concomitant]
  4. FENTANYL-100 [Concomitant]
  5. KEPPRA [Concomitant]
  6. MENOPENEM [Concomitant]
  7. M.V.I. [Concomitant]
  8. RANITIDINE [Concomitant]
  9. BICARB [Concomitant]
  10. VANCOMYCIN [Concomitant]

REACTIONS (2)
  - INFUSION RELATED REACTION [None]
  - MEAN ARTERIAL PRESSURE DECREASED [None]
